FAERS Safety Report 17228378 (Version 10)
Quarter: 2021Q3

REPORT INFORMATION
  Report Type: Report from Study
  Country: US (occurrence: US)
  Receive Date: 20200103
  Receipt Date: 20210914
  Transmission Date: 20211014
  Serious: Yes (Other)
  Sender: FDA-Public Use
  Company Number: US-SHIRE-US201945625

PATIENT
  Sex: Female
  Weight: 72 kg

DRUGS (23)
  1. HUMAN NORMAL IMMUNOGLOBULIN; LIQUID [Suspect]
     Active Substance: HUMAN IMMUNOGLOBULIN G
     Indication: IMMUNODEFICIENCY COMMON VARIABLE
     Dosage: 30 GRAM, Q4WEEKS
     Route: 042
     Dates: start: 20161205
  2. VYVANSE [Concomitant]
     Active Substance: LISDEXAMFETAMINE DIMESYLATE
  3. DIPHENHYDRAMINE. [Concomitant]
     Active Substance: DIPHENHYDRAMINE
  4. CYMBALTA [Concomitant]
     Active Substance: DULOXETINE HYDROCHLORIDE
  5. TESTOSTERONE. [Concomitant]
     Active Substance: TESTOSTERONE
  6. LIDOCAINE. [Concomitant]
     Active Substance: LIDOCAINE
  7. XOLAIR [Concomitant]
     Active Substance: OMALIZUMAB
  8. SYNTHROID [Concomitant]
     Active Substance: LEVOTHYROXINE SODIUM
     Route: 065
  9. ROBAXIN [Concomitant]
     Active Substance: METHOCARBAMOL
  10. ORTHOVISC [Concomitant]
     Active Substance: HYALURONIC ACID
  11. TRAZODONE [Concomitant]
     Active Substance: TRAZODONE HYDROCHLORIDE
     Route: 065
  12. SODIUM CHLORIDE. [Concomitant]
     Active Substance: SODIUM CHLORIDE
  13. ARMOUR THYROID [Concomitant]
     Active Substance: THYROID, PORCINE
  14. MULTIVITAMINS [Concomitant]
     Active Substance: VITAMINS
  15. MODERNA COVID?19 VACCINE [Concomitant]
     Active Substance: CX-024414
     Route: 065
  16. ACETAMINOPHEN. [Concomitant]
     Active Substance: ACETAMINOPHEN
  17. EPINEPHRINE. [Concomitant]
     Active Substance: EPINEPHRINE
  18. PROGESTERONE. [Concomitant]
     Active Substance: PROGESTERONE
  19. DULCOLAX BALANCE [Concomitant]
     Active Substance: POLYETHYLENE GLYCOL 3350
  20. HYDROXYZINE [Concomitant]
     Active Substance: HYDROXYZINE HYDROCHLORIDE
     Route: 065
  21. GABAPENTIN. [Concomitant]
     Active Substance: GABAPENTIN
  22. CEFADROXIL. [Concomitant]
     Active Substance: CEFADROXIL
  23. GENOTROPIN [Concomitant]
     Active Substance: SOMATROPIN
     Route: 065

REACTIONS (12)
  - Oral disorder [Unknown]
  - Rash [Unknown]
  - Staphylococcal infection [Unknown]
  - Headache [Unknown]
  - Oral pain [Unknown]
  - Pain [Unknown]
  - Fatigue [Unknown]
  - Throat tightness [Unknown]
  - Sinus disorder [Unknown]
  - Tooth infection [Unknown]
  - Swelling face [Unknown]
  - Idiopathic urticaria [Unknown]
